FAERS Safety Report 7072920-3 (Version None)
Quarter: 2010Q4

REPORT INFORMATION
  Report Type: 
  Country: None (occurrence: None)
  Receive Date: 20101029
  Receipt Date: 20100330
  Transmission Date: 20110411
  Serious: No
  Sender: FDA-Public Use
  Company Number: A0852676A

PATIENT
  Age: 88 Year
  Sex: Female

DRUGS (4)
  1. ADVAIR DISKUS 100/50 [Suspect]
     Indication: EMPHYSEMA
     Dosage: 1PUFF TWICE PER DAY
     Route: 055
     Dates: start: 20100321, end: 20100328
  2. BLOOD PRESSURE MEDICATION [Concomitant]
  3. MUCINEX [Concomitant]
  4. NOSE DROPS [Concomitant]

REACTIONS (1)
  - PRURITUS [None]
